FAERS Safety Report 5738627-7 (Version None)
Quarter: 2008Q2

REPORT INFORMATION
  Report Type: 
  Country: None (occurrence: None)
  Receive Date: 20080513
  Receipt Date: 20080513
  Transmission Date: 20081010
  Serious: Yes (Disabling)
  Sender: FDA-Public Use
  Company Number: None

PATIENT
  Sex: Female

DRUGS (3)
  1. PRO HEALTH CREST MOUTHWASH [Suspect]
     Indication: DENTAL PLAQUE
     Dosage: 20 ML ONCE DAILY PO
     Route: 048
     Dates: start: 20071101, end: 20080501
  2. PRO HEALTH CREST MOUTHWASH [Suspect]
     Indication: GINGIVITIS
     Dosage: 20 ML ONCE DAILY PO
     Route: 048
     Dates: start: 20071101, end: 20080501
  3. PRO HEALTH CREST MOUTHWASH [Suspect]
     Indication: PROPHYLAXIS
     Dosage: 20 ML ONCE DAILY PO
     Route: 048
     Dates: start: 20071101, end: 20080501

REACTIONS (1)
  - TOOTH DISCOLOURATION [None]
